FAERS Safety Report 7401266-6 (Version None)
Quarter: 2011Q2

REPORT INFORMATION
  Report Type: 
  Country: None (occurrence: None)
  Receive Date: 20110407
  Receipt Date: 20110329
  Transmission Date: 20111010
  Serious: Yes (Hospitalization)
  Sender: FDA-Public Use
  Company Number: FR-BAXTER-2011BH008771

PATIENT
  Age: 74 Year
  Sex: Male

DRUGS (9)
  1. HOLOXAN BAXTER [Suspect]
     Indication: PRODUCT USED FOR UNKNOWN INDICATION
     Route: 042
     Dates: start: 20101208, end: 20101208
  2. ETOPOSIDE [Suspect]
     Indication: PRODUCT USED FOR UNKNOWN INDICATION
     Route: 048
     Dates: start: 20101208, end: 20101208
  3. PREVISCAN [Concomitant]
     Indication: PRODUCT USED FOR UNKNOWN INDICATION
     Route: 065
  4. DOMPERIDONE [Concomitant]
     Indication: PRODUCT USED FOR UNKNOWN INDICATION
     Route: 065
  5. HOLOXAN BAXTER [Suspect]
     Route: 042
     Dates: start: 20110112, end: 20110112
  6. HOLOXAN BAXTER [Suspect]
     Route: 042
     Dates: start: 20110201, end: 20110201
  7. ETOPOSIDE [Suspect]
     Route: 048
     Dates: start: 20110112, end: 20110112
  8. ESOMEPRAZOLE [Concomitant]
     Indication: PRODUCT USED FOR UNKNOWN INDICATION
     Route: 065
  9. ETOPOSIDE [Suspect]
     Route: 048
     Dates: start: 20110201, end: 20110201

REACTIONS (2)
  - CARDIAC FAILURE [None]
  - EJECTION FRACTION DECREASED [None]
